FAERS Safety Report 8883033 (Version 1)
Quarter: 2012Q4

REPORT INFORMATION
  Report Type: Report from Study
  Country: CA (occurrence: CA)
  Receive Date: 20121102
  Receipt Date: 20121102
  Transmission Date: 20130627
  Serious: Yes (Other)
  Sender: FDA-Public Use
  Company Number: CA-ABBOTT-12P-028-1000021-00

PATIENT
  Age: 72 Year
  Sex: Male
  Weight: 95.34 kg

DRUGS (1)
  1. LUPRON DEPOT [Suspect]
     Indication: PROSTATE CANCER
     Dates: start: 20120223

REACTIONS (12)
  - Aphasia [Unknown]
  - Nervousness [Unknown]
  - Speech disorder [Unknown]
  - Aphasia [Unknown]
  - Nervousness [Unknown]
  - Tongue disorder [Unknown]
  - Speech disorder [Unknown]
  - Carotid artery stenosis [Unknown]
  - Tongue disorder [Unknown]
  - Speech disorder [Unknown]
  - Cerebrovascular accident [Unknown]
  - Transient ischaemic attack [Unknown]
